FAERS Safety Report 9034286 (Version 1)
Quarter: 2013Q1

REPORT INFORMATION
  Report Type: Spontaneous
  Country: US (occurrence: None)
  Receive Date: 20130116
  Receipt Date: 20130116
  Transmission Date: 20140127
  Serious: Yes (Hospitalization, Other)
  Sender: FDA-Public Use
  Company Number: None

PATIENT
  Age: 63 Year
  Sex: Male
  Weight: 136.08 kg

DRUGS (1)
  1. RELISTOR [Suspect]
     Route: 058
     Dates: start: 20130113, end: 20130113

REACTIONS (8)
  - Flushing [None]
  - Dizziness [None]
  - Dyspnoea [None]
  - Blood pressure decreased [None]
  - Heart rate increased [None]
  - Hypoaesthesia [None]
  - Chest pain [None]
  - Nausea [None]
